FAERS Safety Report 18825391 (Version 3)
Quarter: 2021Q2

REPORT INFORMATION
  Report Type: Report from Study
  Country: US (occurrence: US)
  Receive Date: 20210202
  Receipt Date: 20210401
  Transmission Date: 20210717
  Serious: Yes (Other)
  Sender: FDA-Public Use
  Company Number: US-TAKEDA-US202029786

PATIENT
  Age: 63 Year
  Sex: Female

DRUGS (1)
  1. HUMAN NORMAL IMMUNOGLOBULIN; LIQUID [Suspect]
     Active Substance: HUMAN IMMUNOGLOBULIN G
     Indication: PRIMARY IMMUNODEFICIENCY SYNDROME
     Dosage: 30 GRAM, Q4WEEKS
     Route: 042

REACTIONS (8)
  - Allergy to plants [Unknown]
  - Dust allergy [Unknown]
  - Neuropathy peripheral [Unknown]
  - Fatigue [Unknown]
  - Amnesia [Unknown]
  - Inability to afford medication [Unknown]
  - Sepsis [Unknown]
  - Blood creatinine increased [Unknown]

NARRATIVE: CASE EVENT DATE: 201809
